FAERS Safety Report 12066623 (Version 1)
Quarter: 2016Q1

REPORT INFORMATION
  Report Type: Spontaneous
  Country: US (occurrence: None)
  Receive Date: 20160210
  Receipt Date: 20160210
  Transmission Date: 20160526
  Serious: No
  Sender: FDA-Public Use
  Company Number: None

PATIENT
  Age: 6 Year
  Sex: Male
  Weight: 19.9 kg

DRUGS (4)
  1. GABAPENTIN (NEURONTIN) [Concomitant]
  2. OXCARBAZINE (TRILEPTAL) [Concomitant]
  3. DIASTAT ACUDIAL [Concomitant]
     Active Substance: DIAZEPAM
  4. POTIGA [Suspect]
     Active Substance: EZOGABINE
     Indication: DYSTONIA
     Dosage: 1 PILL TID ORAL
     Route: 048

REACTIONS (2)
  - Retinitis pigmentosa [None]
  - Retinal pigmentation [None]

NARRATIVE: CASE EVENT DATE: 20160126
